FAERS Safety Report 14333822 (Version 1)
Quarter: 2017Q4

REPORT INFORMATION
  Report Type: Spontaneous
  Country: GB (occurrence: GB)
  Receive Date: 20171228
  Receipt Date: 20171228
  Transmission Date: 20180321
  Serious: Yes (Other)
  Sender: FDA-Public Use
  Company Number: GB-PFIZER INC-2017549473

PATIENT
  Age: 73 Year
  Sex: Female
  Weight: 63 kg

DRUGS (4)
  1. LETROZOLE. [Concomitant]
     Active Substance: LETROZOLE
     Dosage: UNK
  2. BISOPROLOL [Concomitant]
     Active Substance: BISOPROLOL
     Dosage: UNK
  3. APIXABAN [Concomitant]
     Active Substance: APIXABAN
     Dosage: UNK
  4. IBRANCE [Suspect]
     Active Substance: PALBOCICLIB
     Indication: BREAST CANCER METASTATIC
     Dosage: 75 MG, 1X/DAY
     Route: 048
     Dates: start: 20170320

REACTIONS (4)
  - Eye haemorrhage [Unknown]
  - Retinal vein occlusion [Unknown]
  - Visual acuity reduced [Unknown]
  - Eye oedema [Unknown]

NARRATIVE: CASE EVENT DATE: 20171202
